FAERS Safety Report 8038324-1 (Version None)
Quarter: 2012Q1

REPORT INFORMATION
  Report Type: 
  Country: None (occurrence: None)
  Receive Date: 20120111
  Receipt Date: 20111201
  Transmission Date: 20120608
  Serious: No
  Sender: FDA-Public Use
  Company Number: US-AMGEN-USASP2011012201

PATIENT
  Age: 62 Year
  Sex: Female

DRUGS (24)
  1. ENBREL [Suspect]
     Indication: PSORIATIC ARTHROPATHY
     Dosage: 50 MG, QWK
     Dates: start: 20071012
  2. CLOBETASOL PROPIONATE [Concomitant]
     Indication: PSORIASIS
     Dosage: 0.05 %, BID
     Route: 061
     Dates: start: 20070301, end: 20080201
  3. ALTACE [Concomitant]
     Indication: HYPERTENSION
     Dosage: 10 MG, QD
     Route: 048
     Dates: start: 20050101
  4. HYDROXYZINE HCL [Concomitant]
     Indication: PRURITUS
     Dosage: 25 MG, PRN
     Route: 048
     Dates: start: 20100610
  5. DIGOXIN [Concomitant]
     Indication: ARRHYTHMIA
     Dosage: .25 MG, QD
     Route: 048
     Dates: start: 19860101
  6. PRADAXA [Concomitant]
     Indication: HYPERTENSION
     Dosage: 150 MG, QD
     Route: 048
     Dates: start: 20110201
  7. DESONIDE [Concomitant]
     Indication: PSORIASIS
     Dosage: UNK UNK, BID
     Route: 061
     Dates: start: 20071012, end: 20080201
  8. METFORMIN HCL [Concomitant]
     Indication: DIABETES MELLITUS
     Dosage: 1000 MG, QD
     Route: 048
     Dates: start: 20050101
  9. LIPITOR [Concomitant]
     Indication: HYPERLIPIDAEMIA
     Dosage: 20 MG, QD
     Route: 048
     Dates: start: 20050101
  10. CALCIPOTRIENE [Concomitant]
     Indication: PSORIASIS
     Dosage: UNK UNK, BID
     Route: 061
     Dates: start: 20070301, end: 20080201
  11. ACTOS [Concomitant]
     Indication: DIABETES MELLITUS
     Dosage: 45 MG, QD
     Route: 048
     Dates: start: 20050101
  12. FUROSEMIDE [Concomitant]
  13. DICLOFENAC SODIUM [Concomitant]
     Indication: PSORIASIS
     Dosage: 75 MG, QD
     Route: 048
     Dates: start: 20100610, end: 20110201
  14. CLOBETASOL PROPIONATE [Concomitant]
     Dosage: UNK, BID
     Route: 061
     Dates: start: 20101206, end: 20110101
  15. DICLOFENAC SODIUM [Concomitant]
     Indication: ARTHRITIS
     Dosage: 50 MG, QD
     Route: 048
     Dates: start: 20050101, end: 20100609
  16. CELEBREX [Concomitant]
     Dosage: 200 MG, Q10MIN
     Route: 048
     Dates: start: 20050101, end: 20091201
  17. GLIPIZIDE [Concomitant]
     Indication: DIABETES MELLITUS
     Dosage: 10 MG, QD
     Route: 048
     Dates: start: 20050101
  18. LASIX [Concomitant]
     Indication: HYPERTENSION
     Dosage: 40 MG, QD
     Route: 048
     Dates: start: 19860101
  19. TACLONEX [Concomitant]
     Indication: PSORIASIS
     Dosage: 0.005 %, QD
     Route: 061
     Dates: start: 20110416, end: 20110910
  20. ENBREL [Suspect]
     Indication: PSORIASIS
  21. TRIAMCINOLONE ACETONIDE [Concomitant]
     Indication: PSORIASIS
     Dosage: UNK UNK, BID
     Route: 061
     Dates: start: 20100610
  22. VERAPAMIL HCL [Concomitant]
     Indication: ARRHYTHMIA
     Dosage: 240 MG, QD
     Route: 048
     Dates: start: 19860101
  23. SIMVASTATIN [Concomitant]
  24. KENALOG [Concomitant]
     Dosage: 10 MG, UNK
     Dates: start: 20111011, end: 20111011

REACTIONS (5)
  - MUSCULOSKELETAL STIFFNESS [None]
  - CONTUSION [None]
  - RASH MACULAR [None]
  - STRESS [None]
  - OEDEMA PERIPHERAL [None]
